FAERS Safety Report 5515932-0 (Version None)
Quarter: 2007Q4

REPORT INFORMATION
  Report Type: 
  Country: None (occurrence: None)
  Receive Date: 20071109
  Receipt Date: 20071023
  Transmission Date: 20080405
  Serious: Yes (Hospitalization)
  Sender: FDA-Public Use
  Company Number: 07H-008-0313364-00

PATIENT
  Age: 85 Year
  Sex: Female

DRUGS (7)
  1. ISUPREL INJ [Suspect]
     Dosage: 600 MCG, ONCE, INTRAVENOUS
     Route: 042
  2. CAPTOPRIL [Concomitant]
  3. POTASSIUM CHLORIDE [Concomitant]
  4. PAROXETINE HCL [Concomitant]
  5. CARBAMAZEPINE [Concomitant]
  6. TEMAZEPAM [Concomitant]
  7. FUROSEMIDE [Concomitant]

REACTIONS (4)
  - FLUSHING [None]
  - NAUSEA [None]
  - TREMOR [None]
  - VOMITING [None]
